FAERS Safety Report 4809801-9 (Version None)
Quarter: 2005Q4

REPORT INFORMATION
  Report Type: 
  Country: None (occurrence: None)
  Receive Date: 20051021
  Receipt Date: 20051021
  Transmission Date: 20060501
  Serious: Yes (Hospitalization)
  Sender: FDA-Public Use
  Company Number: None

PATIENT
  Age: 60 Year
  Sex: Male
  Weight: 45.3597 kg

DRUGS (12)
  1. DOCETAXEL   80 MG  D  5G150 EXP 05/08 [Suspect]
     Indication: NEOPLASM MALIGNANT
     Dosage: 45 M/M2 Q21DAYS (67.5MG)
  2. OXALIPLATIN  100 MG [Suspect]
     Indication: NEOPLASM MALIGNANT
     Dosage: 100MG/M2 Q21D  (150MG)
  3. CYCLOBENZAPRINE HCL [Concomitant]
  4. OMEPRAZOLE [Concomitant]
  5. ALBUTEROL / IPRATROP [Concomitant]
  6. SENNOSIDES [Concomitant]
  7. DOCUSATE NA [Concomitant]
  8. ONDANSETRON HCL [Concomitant]
  9. DEXAMETHASONE [Concomitant]
  10. PROCHLORPERAZINE MALEATE [Concomitant]
  11. MEGESTROL ACETATE [Concomitant]
  12. NUTRITION SUPL ENSURE PLUS [Concomitant]

REACTIONS (4)
  - COUGH [None]
  - DYSPNOEA EXERTIONAL [None]
  - LUNG DISORDER [None]
  - PNEUMOTHORAX [None]
